FAERS Safety Report 18459884 (Version 2)
Quarter: 2020Q4

REPORT INFORMATION
  Report Type: Spontaneous
  Country: IR (occurrence: IR)
  Receive Date: 20201104
  Receipt Date: 20201113
  Transmission Date: 20210114
  Serious: Yes (Life-Threatening, Hospitalization, Other)
  Sender: FDA-Public Use
  Company Number: IR-MACLEODS PHARMACEUTICALS US LTD-MAC2020028897

PATIENT

DRUGS (1)
  1. LIDOCAINE. [Suspect]
     Active Substance: LIDOCAINE
     Indication: MEDICAL PROCEDURE
     Dosage: 2.5 PERCENT, TOTAL, CREAM
     Route: 061

REACTIONS (10)
  - Cardiac arrest [Recovered/Resolved]
  - Cardiotoxicity [Recovered/Resolved]
  - Aortic intramural haematoma [Recovered/Resolved]
  - Pneumonia aspiration [Recovered/Resolved]
  - Left ventricular dysfunction [Recovered/Resolved]
  - Asthenia [Recovered/Resolved]
  - Tricuspid valve incompetence [Recovered/Resolved]
  - Paraesthesia [Recovered/Resolved]
  - Leukocytosis [Recovered/Resolved]
  - Pyrexia [Recovered/Resolved]
